FAERS Safety Report 17335289 (Version 3)
Quarter: 2021Q1

REPORT INFORMATION
  Report Type: Report from Study
  Country: US (occurrence: US)
  Receive Date: 20200128
  Receipt Date: 20210101
  Transmission Date: 20210419
  Serious: Yes (Death, Hospitalization)
  Sender: FDA-Public Use
  Company Number: US-ROCHE-2456887

PATIENT
  Age: 76 Year
  Sex: Female
  Weight: 44.6 kg

DRUGS (3)
  1. ATEZOLIZUMAB. [Suspect]
     Active Substance: ATEZOLIZUMAB
     Indication: SMALL CELL LUNG CANCER
     Dosage: THIS WAS LAST DOS DOSE OF ATEZOLIZUMAB ADMINSITERED PRIOR TO SAE.
     Route: 042
     Dates: start: 20190925
  2. ETOPOSIDE. [Suspect]
     Active Substance: ETOPOSIDE
     Indication: SMALL CELL LUNG CANCER
     Dosage: LAST ADMINITRATION DATE: 27?SEP?2019
     Route: 065
     Dates: start: 20190827
  3. CARBOPLATIN. [Suspect]
     Active Substance: CARBOPLATIN
     Indication: SMALL CELL LUNG CANCER
     Dosage: LAST ADMINISTRATION DATE: 25?SEP?2019
     Route: 065
     Dates: start: 20190827

REACTIONS (9)
  - Angina pectoris [Recovered/Resolved]
  - Hypotension [Unknown]
  - Decreased appetite [Recovered/Resolved]
  - COVID-19 [Fatal]
  - Cough [Unknown]
  - Oesophagitis [Recovered/Resolved]
  - Ileus [Recovered/Resolved]
  - Myocardial infarction [Not Recovered/Not Resolved]
  - Pyrexia [Unknown]

NARRATIVE: CASE EVENT DATE: 20191009
